FAERS Safety Report 13136833 (Version 1)
Quarter: 2017Q1

REPORT INFORMATION
  Report Type: Spontaneous
  Country: US (occurrence: US)
  Receive Date: 20170123
  Receipt Date: 20170123
  Transmission Date: 20170428
  Serious: No
  Sender: FDA-Public Use
  Company Number: US-GLAXOSMITHKLINE-US2017007268

PATIENT
  Sex: Female

DRUGS (1)
  1. EPZICOM [Suspect]
     Active Substance: ABACAVIR SULFATE\LAMIVUDINE
     Indication: HIV INFECTION
     Dosage: 1 DF, QD
     Route: 048
     Dates: end: 20170107

REACTIONS (4)
  - Throat tightness [Recovering/Resolving]
  - Rash [Recovering/Resolving]
  - Feeding disorder [Recovering/Resolving]
  - Dysphagia [Recovering/Resolving]
